FAERS Safety Report 6665878-X (Version None)
Quarter: 2010Q2

REPORT INFORMATION
  Report Type: 
  Country: None (occurrence: None)
  Receive Date: 20100402
  Receipt Date: 20100326
  Transmission Date: 20101027
  Serious: Yes (Other)
  Sender: FDA-Public Use
  Company Number: BR-ROCHE-688145

PATIENT
  Sex: Male
  Weight: 80 kg

DRUGS (2)
  1. ROACUTAN [Suspect]
     Indication: ACNE
     Route: 065
     Dates: start: 20080101, end: 20080101
  2. ROACUTAN [Suspect]
     Dosage: START DATE: 2010
     Route: 065

REACTIONS (4)
  - BLOOD CHOLESTEROL INCREASED [None]
  - SCAR [None]
  - SKIN LESION [None]
  - SKIN NECROSIS [None]
